FAERS Safety Report 7305548-8 (Version None)
Quarter: 2011Q1

REPORT INFORMATION
  Report Type: 
  Country: None (occurrence: None)
  Receive Date: 20110210
  Receipt Date: 20110127
  Transmission Date: 20110831
  Serious: Yes (Other)
  Sender: FDA-Public Use
  Company Number: FRP10001104

PATIENT
  Age: 62 Year
  Sex: Female

DRUGS (6)
  1. CALCIUM (CALCIUM) [Concomitant]
  2. DEDROGYL (CALCIFEDIOL) [Concomitant]
  3. L-TYROSINE (TYROSINE) [Concomitant]
  4. SPECIAFOLDINE (FOLIC ACID) [Concomitant]
  5. ACTONEL [Suspect]
     Indication: OSTEOPOROSIS
     Dosage: 2 TABLET, 1/MONTH, ORAL
     Route: 048
     Dates: start: 20100516, end: 20100617
  6. CROMOGLYCATE DISODIUM (CROMOGLICATE SODIUM) [Concomitant]

REACTIONS (4)
  - TOOTH DECALCIFICATION [None]
  - PAIN [None]
  - ORAL DISCOMFORT [None]
  - TOOTH EROSION [None]
